FAERS Safety Report 4566621-0 (Version None)
Quarter: 2005Q1

REPORT INFORMATION
  Report Type: 
  Country: None (occurrence: None)
  Receive Date: 20050201
  Receipt Date: 20050121
  Transmission Date: 20050727
  Serious: Yes (Other)
  Sender: FDA-Public Use
  Company Number: US-GLAXOSMITHKLINE-A0541821A

PATIENT
  Age: 74 Year
  Sex: Female

DRUGS (5)
  1. TUMS [Suspect]
     Indication: DYSPEPSIA
     Dosage: 4TAB PER DAY
     Route: 048
  2. MONOPRIL [Concomitant]
     Route: 048
  3. ADVIL [Concomitant]
     Route: 048
  4. MULTI-VITAMIN [Concomitant]
     Route: 048
  5. CALCIUM SUPPLEMENT [Concomitant]
     Route: 048

REACTIONS (6)
  - BLOOD URINE PRESENT [None]
  - CARDIAC VALVE DISEASE [None]
  - ILL-DEFINED DISORDER [None]
  - RENAL CELL CARCINOMA STAGE UNSPECIFIED [None]
  - TACHYCARDIA [None]
  - URETERIC STENOSIS [None]
